FAERS Safety Report 17030866 (Version 2)
Quarter: 2020Q2

REPORT INFORMATION
  Report Type: Report from Study
  Country: GB (occurrence: GB)
  Receive Date: 20191114
  Receipt Date: 20200605
  Transmission Date: 20200713
  Serious: Yes (Other)
  Sender: FDA-Public Use
  Company Number: PHHY2019GB194428

PATIENT
  Sex: Male

DRUGS (1)
  1. RYDAPT [Suspect]
     Active Substance: MIDOSTAURIN
     Indication: PRODUCT USED FOR UNKNOWN INDICATION
     Dosage: UNK
     Route: 065

REACTIONS (8)
  - Ventricular extrasystoles [Unknown]
  - Hyperhidrosis [Unknown]
  - Arrhythmia [Unknown]
  - Oxygen saturation decreased [Unknown]
  - Malaise [Unknown]
  - Liver disorder [Unknown]
  - Hepatic enzyme increased [Recovered/Resolved]
  - Nausea [Unknown]
